FAERS Safety Report 8037146-5 (Version None)
Quarter: 2012Q1

REPORT INFORMATION
  Report Type: 
  Country: None (occurrence: None)
  Receive Date: 20120111
  Receipt Date: 20120109
  Transmission Date: 20120608
  Serious: Yes (Death, Other)
  Sender: FDA-Public Use
  Company Number: US-PFIZER INC-2011187368

PATIENT
  Sex: Female

DRUGS (1)
  1. EFFEXOR XR [Suspect]
     Indication: MULTIPLE SCLEROSIS
     Dosage: 100 MG, UNK
     Route: 048

REACTIONS (3)
  - MULTIPLE SCLEROSIS [None]
  - DEATH [None]
  - FEELING ABNORMAL [None]
